FAERS Safety Report 7940466-3 (Version None)
Quarter: 2011Q4

REPORT INFORMATION
  Report Type: 
  Country: None (occurrence: None)
  Receive Date: 20111128
  Receipt Date: 20111123
  Transmission Date: 20120403
  Serious: No
  Sender: FDA-Public Use
  Company Number: US-PFIZER INC-2011286776

PATIENT
  Sex: Male

DRUGS (3)
  1. LEXAPRO [Concomitant]
     Dosage: UNK
  2. METOPROLOL [Concomitant]
     Dosage: UNK
  3. TIKOSYN [Suspect]
     Dosage: UNK

REACTIONS (1)
  - SOMNOLENCE [None]
